FAERS Safety Report 26133490 (Version 1)
Quarter: 2025Q4

REPORT INFORMATION
  Report Type: Spontaneous
  Country: EU (occurrence: EU)
  Receive Date: 20251209
  Receipt Date: 20251209
  Transmission Date: 20260118
  Serious: Yes (Other)
  Sender: ALVOGEN
  Company Number: EU-ALVOGEN-2025099168

PATIENT
  Sex: Female

DRUGS (1)
  1. LISDEXAMFETAMINE [Suspect]
     Active Substance: LISDEXAMFETAMINE
     Indication: Attention deficit hyperactivity disorder
     Route: 048
     Dates: start: 20250423

REACTIONS (11)
  - Dyspepsia [Unknown]
  - Fatigue [Unknown]
  - Disturbance in attention [Unknown]
  - Incontinence [Unknown]
  - Hepatic pain [Unknown]
  - Tooth loss [Unknown]
  - Sleep disorder [Unknown]
  - Dyspnoea [Unknown]
  - Intentional product use issue [Unknown]
  - Product substitution issue [Unknown]
  - Drug ineffective [Unknown]

NARRATIVE: CASE EVENT DATE: 20250423
